FAERS Safety Report 9380097 (Version 1)
Quarter: 2013Q3

REPORT INFORMATION
  Report Type: Spontaneous
  Country: US (occurrence: US)
  Receive Date: 20130702
  Receipt Date: 20130702
  Transmission Date: 20140515
  Serious: Yes (Other)
  Sender: FDA-Public Use
  Company Number: US-BAYER-2013-078767

PATIENT
  Age: 50 Year
  Sex: Female
  Weight: 89.57 kg

DRUGS (11)
  1. YAZ [Suspect]
  2. TRAMADOL [Concomitant]
     Dosage: 500 MG, UNK
     Route: 048
  3. SUCRALFATE [Concomitant]
     Dosage: 1UNK UNK, TID,3-4 TIMES A DAY
     Route: 048
  4. METOCLOPRAMIDE [Concomitant]
     Dosage: 10 MG, UNK
     Route: 048
  5. TRIAMTEREN HCT [Concomitant]
     Dosage: 37 DAILY
     Route: 048
  6. ADDERALL [Concomitant]
     Dosage: 30 MG, DAILY
     Route: 048
  7. PREVACID [Concomitant]
     Dosage: 30 MG, DAILY
     Route: 048
  8. KLOR-CON [Concomitant]
     Dosage: 20 MEQ, DAILY
  9. CEPHALEXIN [Concomitant]
     Dosage: 500 MG, DAY
     Route: 048
  10. DICLOFENAC [Concomitant]
     Dosage: 75 MG,DAY
     Route: 048
  11. AMOXICILLIN [Concomitant]
     Dosage: 875 MG, DAY
     Route: 048

REACTIONS (1)
  - Thrombophlebitis superficial [None]
